FAERS Safety Report 19770278 (Version 3)
Quarter: 2022Q1

REPORT INFORMATION
  Report Type: Report from Study
  Country: US (occurrence: US)
  Receive Date: 20210901
  Receipt Date: 20220203
  Transmission Date: 20220423
  Serious: Yes (Other)
  Sender: FDA-Public Use
  Company Number: US-BIOVITRUM-2020US6220

PATIENT
  Sex: Female

DRUGS (2)
  1. KINERET [Suspect]
     Active Substance: ANAKINRA
     Indication: Rheumatoid arthritis
     Route: 058
     Dates: start: 20200811
  2. UNSPECIFIED INGREDIENT [Suspect]
     Active Substance: UNSPECIFIED INGREDIENT

REACTIONS (14)
  - Rheumatoid arthritis [Unknown]
  - Carcinoembryonic antigen increased [Unknown]
  - Pericarditis [Not Recovered/Not Resolved]
  - Cataract [Unknown]
  - Pericardial fibrosis [Unknown]
  - Carotid artery disease [Unknown]
  - Blood creatinine increased [Unknown]
  - Glomerular filtration rate decreased [Unknown]
  - Herpes zoster [Unknown]
  - Nausea [Unknown]
  - Thyroid cyst [Unknown]
  - Feeling abnormal [Recovered/Resolved]
  - Fatigue [Unknown]
  - Injection site reaction [Unknown]
